FAERS Safety Report 9334867 (Version 1)
Quarter: 2013Q2

REPORT INFORMATION
  Report Type: Spontaneous
  Country: US (occurrence: US)
  Receive Date: 20130606
  Receipt Date: 20130606
  Transmission Date: 20140414
  Serious: No
  Sender: FDA-Public Use
  Company Number: US-AMGEN-USASP2013021681

PATIENT
  Age: 64 Year
  Sex: Female
  Weight: 64.4 kg

DRUGS (3)
  1. PROLIA [Suspect]
     Indication: OSTEOPOROSIS POSTMENOPAUSAL
     Dosage: UNK
  2. DEMADEX                            /01036501/ [Concomitant]
  3. CORTISONE [Concomitant]

REACTIONS (5)
  - Weight increased [Unknown]
  - Joint swelling [Unknown]
  - Laceration [Unknown]
  - Skin discolouration [Unknown]
  - Erythema [Unknown]
